FAERS Safety Report 11282686 (Version 1)
Quarter: 2015Q3

REPORT INFORMATION
  Report Type: Report from Study
  Country: US (occurrence: US)
  Receive Date: 20150720
  Receipt Date: 20150720
  Transmission Date: 20151125
  Serious: Yes (Hospitalization)
  Sender: FDA-Public Use
  Company Number: US-JNJFOC-20130717439

PATIENT
  Age: 69 Year
  Sex: Male
  Weight: 97.07 kg

DRUGS (11)
  1. ABIRATERONE ACETATE [Suspect]
     Active Substance: ABIRATERONE ACETATE
     Indication: PROSTATE CANCER
     Route: 048
     Dates: start: 20130313, end: 20130328
  2. GLIPIZIDE. [Concomitant]
     Active Substance: GLIPIZIDE
     Dates: start: 2009
  3. NIFEDICAL [Concomitant]
     Dates: start: 2009
  4. ABIRATERONE ACETATE [Suspect]
     Active Substance: ABIRATERONE ACETATE
     Indication: PROSTATE CANCER
     Route: 048
     Dates: start: 20130409
  5. TRICOR [Concomitant]
     Active Substance: FENOFIBRATE
     Dates: start: 2009
  6. COZAAR [Concomitant]
     Active Substance: LOSARTAN POTASSIUM
     Dates: start: 2009
  7. PREDNISONE. [Suspect]
     Active Substance: PREDNISONE
     Indication: PROSTATE CANCER
     Route: 048
     Dates: start: 20130313
  8. ABIRATERONE ACETATE [Suspect]
     Active Substance: ABIRATERONE ACETATE
     Indication: PROSTATE CANCER
     Route: 048
     Dates: end: 20140718
  9. PREDNISONE. [Suspect]
     Active Substance: PREDNISONE
     Indication: PROSTATE CANCER
     Route: 048
  10. ASPIRIN. [Concomitant]
     Active Substance: ASPIRIN
     Route: 048
     Dates: start: 2009
  11. ZOLADEX [Concomitant]
     Active Substance: GOSERELIN ACETATE
     Dates: start: 200509

REACTIONS (2)
  - Pneumonia [Recovered/Resolved]
  - Ischaemic stroke [Recovered/Resolved with Sequelae]

NARRATIVE: CASE EVENT DATE: 20130329
